FAERS Safety Report 12132916 (Version 3)
Quarter: 2016Q2

REPORT INFORMATION
  Report Type: Spontaneous
  Country: US (occurrence: US)
  Receive Date: 20160301
  Receipt Date: 20160502
  Transmission Date: 20160815
  Serious: Yes (Hospitalization, Other)
  Sender: FDA-Public Use
  Company Number: US-JNJFOC-20111005798

PATIENT
  Age: 56 Year
  Sex: Male

DRUGS (1)
  1. LEVAQUIN [Suspect]
     Active Substance: LEVOFLOXACIN
     Indication: DIVERTICULITIS
     Route: 048
     Dates: start: 200910

REACTIONS (3)
  - Tendon rupture [Recovering/Resolving]
  - Rotator cuff syndrome [Recovering/Resolving]
  - Tenosynovitis [Recovering/Resolving]

NARRATIVE: CASE EVENT DATE: 200912
